FAERS Safety Report 9205387 (Version 2)
Quarter: 2013Q3

REPORT INFORMATION
  Report Type: Spontaneous
  Country: US (occurrence: US)
  Receive Date: 20130402
  Receipt Date: 20130809
  Transmission Date: 20140515
  Serious: Yes (Hospitalization, Disabling, Other)
  Sender: FDA-Public Use
  Company Number: US-009507513-1303USA014410

PATIENT
  Sex: Female
  Weight: 79.37 kg

DRUGS (2)
  1. NUVARING [Suspect]
     Indication: CONTRACEPTION
     Dosage: UNK
     Route: 067
     Dates: start: 20090131, end: 20110408
  2. NUVARING [Suspect]
     Indication: MENSTRUATION IRREGULAR

REACTIONS (11)
  - Sinus tachycardia [Unknown]
  - Cerebrovascular accident [Unknown]
  - Cerebral infarction [Unknown]
  - Dehydration [Unknown]
  - Emotional disorder [Unknown]
  - Convulsion [Unknown]
  - Migraine [Unknown]
  - Road traffic accident [Unknown]
  - Transient ischaemic attack [Unknown]
  - Insomnia [Unknown]
  - Off label use [Unknown]
